FAERS Safety Report 13645498 (Version 6)
Quarter: 2017Q3

REPORT INFORMATION
  Report Type: Report from Study
  Country: CN (occurrence: CN)
  Receive Date: 20170613
  Receipt Date: 20170816
  Transmission Date: 20171127
  Serious: Yes (Hospitalization)
  Sender: FDA-Public Use
  Company Number: CN-AMGEN-CHNCT2017088392

PATIENT
  Age: 71 Year
  Sex: Female
  Weight: 51.5 kg

DRUGS (19)
  1. SODIUM CHLORIDE. [Concomitant]
     Active Substance: SODIUM CHLORIDE
     Dosage: 250 TO 500 ML UNK
     Dates: start: 20170331, end: 20170602
  2. CARFILZOMIB [Suspect]
     Active Substance: CARFILZOMIB
     Indication: PLASMA CELL MYELOMA
     Dosage: 30 MG, PER CHEMO REGIM
     Route: 042
     Dates: start: 20170331, end: 20170602
  3. OMEPRAZOLE. [Concomitant]
     Active Substance: OMEPRAZOLE
     Dosage: 40 MUG, UNK
     Route: 042
     Dates: start: 20170406, end: 20170407
  4. METHYLPREDNISOLONE. [Concomitant]
     Active Substance: METHYLPREDNISOLONE
     Dosage: 20-24 MUG AND 40 MG, UNK
     Route: 048
     Dates: start: 20170415, end: 20170516
  5. ALLOPURINOL. [Concomitant]
     Active Substance: ALLOPURINOL
     Dosage: 0.1 G, UNK
     Route: 048
     Dates: start: 20170331
  6. METHYLPREDNISOLONE SODIUM SUCCINATE. [Concomitant]
     Active Substance: METHYLPREDNISOLONE SODIUM SUCCINATE
     Dosage: 40 MUG TO 40 MG, UNK
     Dates: start: 20170413, end: 20170609
  7. POTASSIUM CHLORIDE. [Concomitant]
     Active Substance: POTASSIUM CHLORIDE
     Dosage: 1 G, UNK SUSTAINED-RELEASE TABLETS
     Route: 048
     Dates: start: 20170525, end: 20170607
  8. CALCITRIOL. [Concomitant]
     Active Substance: CALCITRIOL
     Dosage: UNK
     Route: 048
     Dates: start: 20170323
  9. SODIUM BICARBONATE. [Concomitant]
     Active Substance: SODIUM BICARBONATE
     Dosage: 0.5 G, UNK
     Route: 048
     Dates: start: 20170331
  10. CALCIUM CARBONATE. [Concomitant]
     Active Substance: CALCIUM CARBONATE
     Dosage: 0.5 G, UNK
     Route: 048
     Dates: start: 20170323, end: 20170517
  11. AMLODIPINE BESYLATE. [Concomitant]
     Active Substance: AMLODIPINE BESYLATE
     Dosage: 2.5 MUG AND 05 MG, UNK
     Route: 048
     Dates: start: 2014
  12. FAMOTIDINE. [Concomitant]
     Active Substance: FAMOTIDINE
     Dosage: 20 MG, UNK
     Route: 048
     Dates: start: 20170416
  13. ACICLOVIR [Concomitant]
     Active Substance: ACYCLOVIR
     Dosage: 0.4 G, UNK
     Route: 048
     Dates: start: 20170330, end: 20170608
  14. PAMIDRONATE DISODIUM. [Concomitant]
     Active Substance: PAMIDRONATE DISODIUM
     Dosage: 60 MG, UNK
     Route: 042
     Dates: start: 20170331, end: 20170331
  15. CARFILZOMIB [Suspect]
     Active Substance: CARFILZOMIB
     Dosage: 40.5 MG, PER CHEMO REGIM
     Route: 042
  16. DEXAMETHASONE. [Suspect]
     Active Substance: DEXAMETHASONE
     Indication: PLASMA CELL MYELOMA
     Dosage: 30 MG, PER CHEMO REGIM
     Route: 042
     Dates: start: 20170331, end: 20170602
  17. FOLIC ACID. [Concomitant]
     Active Substance: FOLIC ACID
     Dosage: 5 MUG AND 5 MG, UNK
     Route: 048
     Dates: start: 20170406, end: 20170416
  18. MECOBALAMIN [Concomitant]
     Active Substance: METHYLCOBALAMIN
     Dosage: 500 MUG, UNK
     Route: 048
     Dates: start: 20170406
  19. MOXIFLOXACIN HYDROCHLORIDE. [Concomitant]
     Active Substance: MOXIFLOXACIN HYDROCHLORIDE
     Dosage: 0.4 G, UNK
     Route: 050
     Dates: start: 20170413, end: 20170609

REACTIONS (1)
  - Traumatic lung injury [Recovered/Resolved]

NARRATIVE: CASE EVENT DATE: 20170607
